FAERS Safety Report 24319637 (Version 1)
Quarter: 2024Q3

REPORT INFORMATION
  Report Type: Report from Study
  Country: DE (occurrence: DE)
  Receive Date: 20240914
  Receipt Date: 20240914
  Transmission Date: 20241017
  Serious: No
  Sender: ROCHE
  Company Number: DE-ML42393-1001-034-1_1

PATIENT
  Age: 33 Year
  Sex: Female

DRUGS (16)
  1. OCRELIZUMAB [Suspect]
     Active Substance: OCRELIZUMAB
     Indication: Relapsing multiple sclerosis
     Dosage: DOSE FREQUENCY: ONCE
     Route: 042
     Dates: start: 20230912
  2. OCRELIZUMAB [Suspect]
     Active Substance: OCRELIZUMAB
     Dosage: DOSE FREQUENCY: ONCE
     Route: 042
     Dates: start: 20240312
  3. LEVOTHYROXINE SODIUM [Concomitant]
     Active Substance: LEVOTHYROXINE SODIUM
     Indication: Hypothyroidism
     Dosage: DOSE: 88?DOSE FREQUENCY: QD (EVERY DAY)
     Route: 048
     Dates: start: 20090101
  4. CHOLECALCIFEROL [Concomitant]
     Active Substance: CHOLECALCIFEROL
     Indication: Prophylaxis
     Dosage: DOSE: 20000?DOSE FREQUENCY: QS (EVERY WEEK)
     Route: 048
     Dates: start: 20180427
  5. TOPIRAMATE [Concomitant]
     Active Substance: TOPIRAMATE
     Indication: Migraine
     Dosage: DOSE: 25?DOSE FREQUENCY: QD (EVERY DAY)
     Route: 048
     Dates: start: 20231213, end: 202401
  6. NARATRIPTAN [Concomitant]
     Active Substance: NARATRIPTAN HYDROCHLORIDE
     Indication: Migraine
     Dosage: DOSE: 2.5?DOSE FREQUENCY: PRN (AS NEEDED)
     Route: 048
     Dates: start: 202305
  7. ZOPICLONE [Concomitant]
     Active Substance: ZOPICLONE
     Indication: Multiple sclerosis
     Dosage: DOSE: 7.5?DOSE FREQUENCY: PRN (AS NEEDED)
     Route: 048
     Dates: start: 20240305
  8. PREDNISOLUT [PREDNISOLONE HEMISUCCINATE] [Concomitant]
     Indication: Prophylaxis
     Dosage: DOSE FREQUENCY: ONCE
     Route: 042
     Dates: start: 20230912, end: 20230912
  9. PREDNISOLUT [PREDNISOLONE HEMISUCCINATE] [Concomitant]
     Dosage: DOSE FREQUENCY: ONCE
     Route: 042
     Dates: start: 20230928, end: 20230928
  10. PREDNISOLUT [PREDNISOLONE HEMISUCCINATE] [Concomitant]
     Dosage: DOSE FREQUENCY: ONCE
     Route: 042
     Dates: start: 20240312, end: 20240312
  11. AERIUS (DESLORATADINE) [Concomitant]
     Active Substance: DESLORATADINE
     Indication: Prophylaxis
     Dosage: DOSE FREQUENCY: 2 TIMES A DAY FOR 3 DAYS, START 1 DAY BEFORE INFUSION
     Route: 048
     Dates: start: 20230911, end: 20230913
  12. AERIUS (DESLORATADINE) [Concomitant]
     Active Substance: DESLORATADINE
     Dosage: DOSE FREQUENCY: 2 TIMES A DAY FOR 3 DAYS, START 1 DAY BEFORE INFUSION
     Route: 048
     Dates: start: 20230927, end: 20230929
  13. AERIUS (DESLORATADINE) [Concomitant]
     Active Substance: DESLORATADINE
     Dosage: DOSE FREQUENCY: 2 TIMES A DAY FOR 3 DAYS, START 1 DAY BEFORE INFUSION
     Route: 048
     Dates: start: 20240311, end: 20240313
  14. VOLON [Concomitant]
     Indication: Prophylaxis
     Dosage: DOSE FREQUENCY: ONCE
     Route: 042
     Dates: start: 20240905, end: 20240905
  15. DESLORATADINE [Concomitant]
     Active Substance: DESLORATADINE
     Indication: Prophylaxis
     Dosage: DOSE FREQUENCY: 2 TIMES A DAY FOR 3 DAYS, START 1 DAY BEFORE INFUSION
     Route: 048
     Dates: start: 20240904, end: 20240906
  16. BISOPROLOL [Concomitant]
     Active Substance: BISOPROLOL\BISOPROLOL FUMARATE
     Indication: COVID-19
     Dosage: DOSE: 2.5?DOSE FREQUENCY: QD (EVERY DAY)
     Route: 048
     Dates: start: 20240614

REACTIONS (1)
  - COVID-19 [Recovered/Resolved]

NARRATIVE: CASE EVENT DATE: 20240806
